FAERS Safety Report 16150245 (Version 2)
Quarter: 2020Q3

REPORT INFORMATION
  Report Type: Spontaneous
  Country: DE (occurrence: DE)
  Receive Date: 20190403
  Receipt Date: 20200909
  Transmission Date: 20201102
  Serious: Yes (Hospitalization, Other)
  Sender: FDA-Public Use
  Company Number: PHHY2019DE070385

PATIENT
  Sex: Male
  Weight: 83 kg

DRUGS (34)
  1. CIPROFLOXACIN. [Concomitant]
     Active Substance: CIPROFLOXACIN
     Indication: PROPHYLAXIS
     Dosage: 500 MG, PRN
     Route: 065
     Dates: start: 2017, end: 20190306
  2. ASPIRIN. [Concomitant]
     Active Substance: ASPIRIN
     Indication: PROPHYLAXIS
     Dosage: 100 MG, QD
     Route: 065
     Dates: start: 2017, end: 20190306
  3. RAMIPRIL. [Concomitant]
     Active Substance: RAMIPRIL
     Indication: PROPHYLAXIS
     Dosage: 10 MG, QD (5 MILLIGRAM, BID)
     Route: 065
     Dates: start: 2017, end: 2020
  4. CEFUROXIM [Concomitant]
     Active Substance: CEFUROXIME
     Dosage: 1000 MG, QD
     Route: 065
     Dates: start: 20181029
  5. CALCIUM D3 [Concomitant]
     Active Substance: CALCIUM\CHOLECALCIFEROL
     Indication: PROPHYLAXIS
     Dosage: UNK UNK, QD (DOSE: 9999.99)
     Route: 005
     Dates: start: 20190201
  6. CLEXANE [Concomitant]
     Active Substance: ENOXAPARIN SODIUM
     Indication: PROPHYLAXIS
     Dosage: 0.4 ML, PRN
     Route: 065
     Dates: start: 20170624, end: 20180701
  7. CLEXANE [Concomitant]
     Active Substance: ENOXAPARIN SODIUM
     Dosage: 0.4 ML, PRN
     Route: 065
     Dates: start: 20180701
  8. LENALIDOMIDE [Suspect]
     Active Substance: LENALIDOMIDE
     Dosage: 20 MG, UNK
     Route: 065
     Dates: start: 20190306
  9. DIGITOXIN [Concomitant]
     Active Substance: DIGITOXIN
     Indication: CARDIAC FAILURE
     Dosage: UNK
     Route: 065
  10. DIGITOXIN [Concomitant]
     Active Substance: DIGITOXIN
     Indication: PROPHYLAXIS
     Dosage: 0.07MG, QD
     Route: 048
     Dates: start: 20190306, end: 2020
  11. ALLOPURINOL. [Concomitant]
     Active Substance: ALLOPURINOL
     Indication: PROPHYLAXIS
     Dosage: 100 MG, QD
     Route: 065
     Dates: start: 2017, end: 2020
  12. VITAMIN B12 [Concomitant]
     Active Substance: CYANOCOBALAMIN
     Indication: PROPHYLAXIS
     Dosage: 1000 UG, Q3MO
     Route: 065
     Dates: start: 2017, end: 20190306
  13. NOVAMINSULFON [Concomitant]
     Active Substance: METAMIZOLE
     Indication: PROPHYLAXIS
     Dosage: 100 ML, PRN
     Route: 065
     Dates: start: 2017, end: 20190306
  14. MCP [Concomitant]
     Active Substance: METOCLOPRAMIDE HYDROCHLORIDE
     Indication: PROPHYLAXIS
     Dosage: 1 MG, PRN
     Route: 065
     Dates: start: 2017, end: 20200306
  15. PANTOPRAZOLE [Concomitant]
     Active Substance: PANTOPRAZOLE
     Indication: PROPHYLAXIS
     Dosage: 40 MG, QD
     Route: 065
     Dates: start: 2017
  16. MOXONIDIN [Concomitant]
     Active Substance: MOXONIDINE
     Indication: PROPHYLAXIS
     Dosage: 0.3 MG, QD
     Route: 065
     Dates: start: 2017, end: 20190306
  17. DEXAMETHASONE. [Suspect]
     Active Substance: DEXAMETHASONE
     Indication: PLASMA CELL MYELOMA
     Dosage: 20 MG
     Route: 065
     Dates: start: 20180604, end: 20190301
  18. VITAMIN B12 [Concomitant]
     Active Substance: CYANOCOBALAMIN
     Dosage: 1000 UG, Q3MO
     Route: 065
     Dates: start: 20190306
  19. ASPIRIN. [Concomitant]
     Active Substance: ASPIRIN
     Dosage: 100 MG, QD
     Route: 065
     Dates: start: 20190306
  20. AMPHO MORONAL [Concomitant]
     Active Substance: AMPHOTERICIN B
     Indication: PROPHYLAXIS
     Dosage: 50 ML, QD
     Route: 065
     Dates: start: 2017, end: 20190306
  21. DEXAMETHASONE. [Suspect]
     Active Substance: DEXAMETHASONE
     Dosage: 20 MG, UNK
     Route: 065
     Dates: start: 20190301
  22. KALINOR [Concomitant]
     Indication: PROPHYLAXIS
     Dosage: UNK UNK, QD (DOSE: 9999.99 MG)
     Route: 065
     Dates: start: 20180619
  23. FOLSAN [Concomitant]
     Active Substance: FOLIC ACID
     Indication: PROPHYLAXIS
     Dosage: 5 MG, QD
     Route: 065
     Dates: start: 2017
  24. GLANDOMED [Concomitant]
     Indication: PROPHYLAXIS
     Dosage: 500 ML, QD
     Route: 065
     Dates: start: 2017, end: 20190306
  25. AMPHO MORONAL [Concomitant]
     Active Substance: AMPHOTERICIN B
     Dosage: 50 ML, QD
     Route: 065
     Dates: start: 20190306
  26. MOXONIDIN [Concomitant]
     Active Substance: MOXONIDINE
     Dosage: 0.3 MG, QD
     Route: 065
     Dates: start: 20190306
  27. LENALIDOMIDE [Suspect]
     Active Substance: LENALIDOMIDE
     Indication: PLASMA CELL MYELOMA
     Dosage: 20 MG
     Route: 065
     Dates: start: 20180604, end: 20190306
  28. VAXIGRIP [Concomitant]
     Active Substance: INFLUENZA VIRUS VACCINE
     Indication: PROPHYLAXIS
     Dosage: UNK, QD (9999.99)
     Route: 065
     Dates: start: 20181115, end: 20181115
  29. CEFUROXIM [Concomitant]
     Active Substance: CEFUROXIME
     Indication: PRODUCT USED FOR UNKNOWN INDICATION
     Dosage: 1000 MG, QD (500 MILLIGRAM, BID)
     Route: 065
     Dates: start: 20181022, end: 20181029
  30. KYPROLIS [Suspect]
     Active Substance: CARFILZOMIB
     Indication: PLASMA CELL MYELOMA
     Dosage: 20 MG/M2, UNK
     Route: 042
     Dates: start: 20180604, end: 20180612
  31. KYPROLIS [Suspect]
     Active Substance: CARFILZOMIB
     Dosage: 27 MG/M2
     Route: 042
     Dates: start: 20180618, end: 20190301
  32. GLANDOMED [Concomitant]
     Dosage: 500 ML, QD
     Route: 065
     Dates: start: 20190306
  33. ZOMETA [Concomitant]
     Active Substance: ZOLEDRONIC ACID
     Indication: PROPHYLAXIS
     Dosage: 4 MG, QD
     Route: 065
     Dates: start: 2017
  34. ACICLOVIR [Concomitant]
     Active Substance: ACYCLOVIR
     Indication: PROPHYLAXIS
     Dosage: 400 MG, QD
     Route: 065
     Dates: start: 2017

REACTIONS (1)
  - Cardiac failure [Recovered/Resolved]

NARRATIVE: CASE EVENT DATE: 20190306
